FAERS Safety Report 12336913 (Version 1)
Quarter: 2016Q2

REPORT INFORMATION
  Report Type: Spontaneous
  Country: CA (occurrence: CA)
  Receive Date: 20160505
  Receipt Date: 20160505
  Transmission Date: 20160815
  Serious: Yes (Hospitalization, Other)
  Sender: FDA-Public Use
  Company Number: CA-JNJFOC-20160501988

PATIENT
  Age: 51 Year
  Sex: Female

DRUGS (1)
  1. XARELTO [Suspect]
     Active Substance: RIVAROXABAN
     Indication: THROMBOPHLEBITIS SUPERFICIAL
     Route: 048

REACTIONS (4)
  - Thrombosis [Recovered/Resolved]
  - Haemorrhagic ovarian cyst [Recovered/Resolved]
  - Intra-abdominal haemorrhage [Recovered/Resolved]
  - Transfusion [Recovered/Resolved]
